FAERS Safety Report 7742054-0 (Version None)
Quarter: 2011Q3

REPORT INFORMATION
  Report Type: 
  Country: None (occurrence: None)
  Receive Date: 20110912
  Receipt Date: 20110830
  Transmission Date: 20111222
  Serious: Yes (Hospitalization)
  Sender: FDA-Public Use
  Company Number: PHHO2011JP08781

PATIENT
  Sex: Female
  Weight: 56 kg

DRUGS (2)
  1. SPA100A [Suspect]
     Indication: ESSENTIAL HYPERTENSION
     Dosage: 1 DF, DAILY
     Route: 048
     Dates: start: 20110126, end: 20110207
  2. SPA100A [Suspect]
     Dosage: 1 DF, DAILY
     Route: 048
     Dates: start: 20110208, end: 20110531

REACTIONS (1)
  - ADENOMA BENIGN [None]
